FAERS Safety Report 5535555-7 (Version None)
Quarter: 2007Q4

REPORT INFORMATION
  Report Type: 
  Country: None (occurrence: None)
  Receive Date: 20071206
  Receipt Date: 20070130
  Transmission Date: 20080405
  Serious: Yes (Other)
  Sender: FDA-Public Use
  Company Number: US-ASTRAZENECA-2006UW27861

PATIENT
  Age: 449 Month
  Sex: Female
  Weight: 131.8 kg

DRUGS (3)
  1. SEROQUEL [Suspect]
     Indication: BIPOLAR DISORDER
     Route: 048
     Dates: start: 20000101
  2. GEODON [Concomitant]
     Dates: start: 20000101
  3. PAXIL [Concomitant]

REACTIONS (3)
  - DIABETES MELLITUS [None]
  - HEAD INJURY [None]
  - SUICIDE ATTEMPT [None]
